FAERS Safety Report 9050631 (Version 3)
Quarter: 2013Q1

REPORT INFORMATION
  Report Type: Spontaneous
  Country: US (occurrence: US)
  Receive Date: 20130205
  Receipt Date: 20130219
  Transmission Date: 20140127
  Serious: Yes (Hospitalization)
  Sender: FDA-Public Use
  Company Number: US-GILEAD-2013-0068873

PATIENT
  Sex: Female

DRUGS (2)
  1. LETAIRIS [Suspect]
     Indication: PULMONARY ARTERIAL HYPERTENSION
     Dosage: 10 MG, QD
     Dates: start: 20101109
  2. ADCIRCA [Concomitant]

REACTIONS (6)
  - Cardiomegaly [Unknown]
  - Lung disorder [Unknown]
  - Pericardial effusion [Unknown]
  - Pleural effusion [Unknown]
  - Right ventricular failure [Unknown]
  - Fluid retention [Unknown]
